FAERS Safety Report 6510723-6 (Version None)
Quarter: 2009Q4

REPORT INFORMATION
  Report Type: 
  Country: None (occurrence: None)
  Receive Date: 20091222
  Receipt Date: 20091022
  Transmission Date: 20100525
  Serious: No
  Sender: FDA-Public Use
  Company Number: US-ASTRAZENECA-2009SE21939

PATIENT
  Sex: Female
  Weight: 67.1 kg

DRUGS (3)
  1. CRESTOR [Suspect]
     Route: 048
  2. VITAMINS [Concomitant]
  3. MINERAL TAB [Concomitant]

REACTIONS (1)
  - DRY MOUTH [None]
